FAERS Safety Report 25113071 (Version 1)
Quarter: 2025Q1

REPORT INFORMATION
  Report Type: Spontaneous
  Country: CN (occurrence: CN)
  Receive Date: 20250324
  Receipt Date: 20250324
  Transmission Date: 20250408
  Serious: Yes (Other)
  Sender: PFIZER
  Company Number: CN-PFIZER INC-PV202500034301

PATIENT
  Age: 21 Year
  Sex: Male
  Weight: 54 kg

DRUGS (5)
  1. CYTARABINE [Suspect]
     Active Substance: CYTARABINE
     Indication: Acute lymphocytic leukaemia
     Dosage: 3.4 G, 2X/DAY
     Route: 041
     Dates: start: 20250311, end: 20250313
  2. VINCRISTINE SULFATE [Concomitant]
     Active Substance: VINCRISTINE SULFATE
     Indication: Acute lymphocytic leukaemia
  3. PEGASPARGASE [Concomitant]
     Active Substance: PEGASPARGASE
     Indication: Acute lymphocytic leukaemia
  4. CYCLOPHOSPHAMIDE [Concomitant]
     Active Substance: CYCLOPHOSPHAMIDE
     Indication: Acute lymphocytic leukaemia
  5. VENETOCLAX [Concomitant]
     Active Substance: VENETOCLAX
     Indication: Acute lymphocytic leukaemia

REACTIONS (2)
  - Flushing [Recovering/Resolving]
  - Conjunctival hyperaemia [Recovering/Resolving]

NARRATIVE: CASE EVENT DATE: 20250313
